FAERS Safety Report 13722380 (Version 3)
Quarter: 2017Q3

REPORT INFORMATION
  Report Type: Spontaneous
  Country: CN (occurrence: CN)
  Receive Date: 20170706
  Receipt Date: 20170804
  Transmission Date: 20171127
  Serious: Yes (Other)
  Sender: FDA-Public Use
  Company Number: CN-BEH-2017081843

PATIENT
  Age: 24 Year
  Sex: Female

DRUGS (5)
  1. DEXTRAN 40 [Suspect]
     Active Substance: DEXTRAN 40
     Indication: ABDOMINAL DISTENSION
     Route: 065
  2. PROGESTERONE. [Concomitant]
     Active Substance: PROGESTERONE
  3. NORMAL SALINE [Concomitant]
     Active Substance: SODIUM CHLORIDE
     Route: 065
  4. ALBUMIN HUMAN (INN) [Suspect]
     Active Substance: ALBUMIN HUMAN
     Indication: HYPOALBUMINAEMIA
     Route: 065
  5. DEXTRAN 40 [Suspect]
     Active Substance: DEXTRAN 40
     Indication: OVARIAN HYPERSTIMULATION SYNDROME

REACTIONS (2)
  - Hydrothorax [Recovered/Resolved]
  - Ascites [Recovered/Resolved]
